FAERS Safety Report 8407227-2 (Version None)
Quarter: 2012Q2

REPORT INFORMATION
  Report Type: 
  Country: None (occurrence: None)
  Receive Date: 20120604
  Receipt Date: 20120523
  Transmission Date: 20120825
  Serious: Yes (Hospitalization)
  Sender: FDA-Public Use
  Company Number: DE-ROCHE-1071781

PATIENT
  Age: 72 Year
  Sex: Female

DRUGS (12)
  1. FUROSEMIDE [Concomitant]
  2. VALORON [Concomitant]
     Dosage: DOSE: 100/8 RET. (UNIT MOT REPORTED)
  3. ASPIRIN [Concomitant]
  4. CALCILAC KT [Concomitant]
  5. PANTOPRAZOLE [Concomitant]
  6. LEVOTHYROXINE SODIUM [Concomitant]
  7. SIMVASTATIN [Concomitant]
  8. BUPRENORPHINE [Concomitant]
  9. METOPROLOL TARTRATE [Concomitant]
  10. MABTHERA [Suspect]
     Indication: PRODUCT USED FOR UNKNOWN INDICATION
     Route: 042
     Dates: start: 20110106
  11. PIRACETAM [Concomitant]
  12. FOSAMAX [Concomitant]

REACTIONS (1)
  - GRAND MAL CONVULSION [None]
